FAERS Safety Report 6767938-1 (Version None)
Quarter: 2010Q2

REPORT INFORMATION
  Report Type: 
  Country: None (occurrence: None)
  Receive Date: 20100614
  Receipt Date: 20100603
  Transmission Date: 20101027
  Serious: Yes (Other)
  Sender: FDA-Public Use
  Company Number: CA-CELGENEUS-028-20785-10060443

PATIENT
  Sex: Male

DRUGS (2)
  1. THALOMID [Suspect]
     Route: 048
     Dates: start: 20100506, end: 20100512
  2. THALOMID [Suspect]
     Route: 048
     Dates: start: 20100513, end: 20100517

REACTIONS (2)
  - BRADYCARDIA [None]
  - CARDIAC ARREST [None]
